FAERS Safety Report 10143987 (Version 2)
Quarter: 2014Q3

REPORT INFORMATION
  Report Type: Spontaneous
  Country: AR (occurrence: AR)
  Receive Date: 20140430
  Receipt Date: 20140804
  Transmission Date: 20150326
  Serious: Yes (Hospitalization)
  Sender: FDA-Public Use
  Company Number: AR-009507513-1404ARG014332

PATIENT
  Age: 50 Year
  Sex: Female

DRUGS (4)
  1. VICTRELIS [Suspect]
     Active Substance: BOCEPREVIR
     Indication: HEPATITIS C
     Dosage: 600 MG/ DAY, TID
     Route: 048
     Dates: start: 201402, end: 201404
  2. REBETOL [Suspect]
     Active Substance: RIBAVIRIN
     Indication: HEPATITIS C
     Dosage: 800-1200 MG, EVERY 8 HOURS
     Route: 048
     Dates: start: 201401, end: 201404
  3. PEGINTRON [Suspect]
     Active Substance: PEGINTERFERON ALFA-2B
     Indication: HEPATITIS C
     Dosage: 1.5 MICROGRAM PER KILOGRAM WEEKLY
     Route: 058
     Dates: start: 201401, end: 201404
  4. VICTRELIS [Suspect]
     Active Substance: BOCEPREVIR
     Dosage: Q8H-EVERY 8 HOUR, TOTAL DAILY DOSE-600 MG/DAY
     Route: 048
     Dates: start: 20140405, end: 20140409

REACTIONS (2)
  - Abdominal pain upper [Recovering/Resolving]
  - Oesophageal varices haemorrhage [Recovering/Resolving]

NARRATIVE: CASE EVENT DATE: 201401
